FAERS Safety Report 10011416 (Version 1)
Quarter: 2014Q1

REPORT INFORMATION
  Report Type: Spontaneous
  Country: GB (occurrence: None)
  Receive Date: 20140312
  Receipt Date: 20140312
  Transmission Date: 20141002
  Serious: Yes (Hospitalization, Other)
  Sender: FDA-Public Use
  Company Number: 2014GB0132

PATIENT
  Age: 35 Year
  Sex: Female

DRUGS (4)
  1. KINERET [Suspect]
     Indication: AUTOIMMUNE DISORDER
     Route: 058
     Dates: start: 20120101
  2. METHYLPREDNISOLONE (METHYLPREDNISOLONE) [Suspect]
  3. PREDNISOLONE (PREDNISOLONE) (PREDNISOLONE) [Concomitant]
  4. ASPIRIN (ACETYLSALICYLIC ACID) [Concomitant]

REACTIONS (4)
  - Amniotic fluid volume decreased [None]
  - Arthritis [None]
  - Caesarean section [None]
  - Maternal exposure during pregnancy [None]
